FAERS Safety Report 9834293 (Version 1)
Quarter: 2014Q1

REPORT INFORMATION
  Report Type: Spontaneous
  Country: US (occurrence: US)
  Receive Date: 20140122
  Receipt Date: 20140122
  Transmission Date: 20141002
  Serious: Yes (Other)
  Sender: FDA-Public Use
  Company Number: US-SA-2014SA007760

PATIENT
  Age: 70 Year
  Sex: Male

DRUGS (3)
  1. LANTUS SOLOSTAR [Suspect]
     Indication: TYPE 2 DIABETES MELLITUS
     Dosage: FROM: 4 YEARS AGO DOSE:70 UNIT(S)
     Route: 058
  2. NOVOLOG [Suspect]
     Route: 065
  3. SOLOSTAR [Concomitant]
     Indication: TYPE 2 DIABETES MELLITUS
     Dosage: FROM: 4 YEARS AGO

REACTIONS (8)
  - Pancreatitis [Unknown]
  - Abdominal pain upper [Unknown]
  - Renal pain [Unknown]
  - Intervertebral disc disorder [Unknown]
  - Blood cholesterol increased [Unknown]
  - Injection site pain [Unknown]
  - Blood glucose increased [Unknown]
  - Therapeutic response decreased [Unknown]
